FAERS Safety Report 7425196-9 (Version None)
Quarter: 2011Q2

REPORT INFORMATION
  Report Type: 
  Country: None (occurrence: None)
  Receive Date: 20110414
  Receipt Date: 20110401
  Transmission Date: 20111010
  Serious: Yes (Hospitalization)
  Sender: FDA-Public Use
  Company Number: 882052

PATIENT
  Age: 40 Year
  Sex: Female

DRUGS (2)
  1. DOCETAXEL [Suspect]
     Indication: BREAST CANCER
     Dosage: 100 MG/M 2 MILLIGRAM(S)/SQ, METER
     Route: 042
     Dates: start: 20110325, end: 20110325
  2. NEULASTA [Concomitant]

REACTIONS (6)
  - MYALGIA [None]
  - CHOKING SENSATION [None]
  - LEUKOPENIA [None]
  - BRONCHOPNEUMONIA [None]
  - ASTHENIA [None]
  - MALAISE [None]
